FAERS Safety Report 10662903 (Version 2)
Quarter: 2014Q4

REPORT INFORMATION
  Report Type: Spontaneous
  Country: US (occurrence: US)
  Receive Date: 20141218
  Receipt Date: 20141218
  Transmission Date: 20150529
  Serious: No
  Sender: FDA-Public Use
  Company Number: US-ABBVIE-14P-163-1282734-00

PATIENT
  Age: 42 Year
  Sex: Female

DRUGS (1)
  1. FENOFIBRIC ACID DELAYED-RELEASE [Suspect]
     Active Substance: CHOLINE FENOFIBRATE
     Indication: BLOOD CHOLESTEROL
     Route: 048

REACTIONS (1)
  - Abdominal discomfort [Unknown]
